FAERS Safety Report 9250021 (Version 2)
Quarter: 2013Q2

REPORT INFORMATION
  Report Type: Report from Study
  Country: JP (occurrence: JP)
  Receive Date: 20130424
  Receipt Date: 20130424
  Transmission Date: 20140414
  Serious: Yes (Hospitalization)
  Sender: FDA-Public Use
  Company Number: JP-ROCHE-1216513

PATIENT
  Age: 74 Year
  Sex: Female

DRUGS (3)
  1. RITUXIMAB [Suspect]
     Indication: NON-HODGKIN^S LYMPHOMA
     Dosage: 555 MG/BODY
     Route: 042
     Dates: start: 20091015, end: 20120113
  2. CONIEL [Concomitant]
     Indication: HYPERTENSION
     Dosage: 2 TO 4 MG DAILY
     Route: 048
     Dates: start: 20120409
  3. MEVALOTIN [Concomitant]
     Indication: HYPERLIPIDAEMIA
     Dosage: DAILY
     Route: 048
     Dates: start: 20020807

REACTIONS (1)
  - Liver disorder [Recovered/Resolved]
